FAERS Safety Report 5597368-X (Version None)
Quarter: 2008Q1

REPORT INFORMATION
  Report Type: 
  Country: None (occurrence: None)
  Receive Date: 20080121
  Receipt Date: 20080116
  Transmission Date: 20080703
  Serious: Yes (Death)
  Sender: FDA-Public Use
  Company Number: IL-NOVOPROD-271110

PATIENT

DRUGS (2)
  1. NOVOSEVEN [Suspect]
     Indication: HAEMORRHAGE
     Dosage: 19.2 / 2 DOSES
     Dates: start: 20080107
  2. NOR-ADRENALIN [Concomitant]
     Dosage: 66 CC / HR (36 MG %)

REACTIONS (1)
  - ARTERIAL OCCLUSIVE DISEASE [None]
